FAERS Safety Report 21560480 (Version 1)
Quarter: 2022Q4

REPORT INFORMATION
  Report Type: Spontaneous
  Country: JP (occurrence: JP)
  Receive Date: 20221107
  Receipt Date: 20221107
  Transmission Date: 20230113
  Serious: Yes (Other)
  Sender: FDA-Public Use
  Company Number: JP-ELI_LILLY_AND_COMPANY-JP202210013588

PATIENT
  Age: 65 Year
  Sex: Male

DRUGS (3)
  1. NECITUMUMAB [Suspect]
     Active Substance: NECITUMUMAB
     Indication: Non-small cell lung cancer
     Dosage: UNK
     Route: 065
  2. CISPLATIN [Concomitant]
     Active Substance: CISPLATIN
     Dosage: UNK
     Route: 065
  3. GEMCITABINE [Concomitant]
     Active Substance: GEMCITABINE
     Dosage: UNK
     Route: 065

REACTIONS (2)
  - Neutrophil count decreased [Recovered/Resolved]
  - Paronychia [Unknown]
